FAERS Safety Report 17710015 (Version 2)
Quarter: 2020Q2

REPORT INFORMATION
  Report Type: Spontaneous
  Country: DE (occurrence: DE)
  Receive Date: 20200427
  Receipt Date: 20200507
  Transmission Date: 20200714
  Serious: Yes (Life-Threatening, Other)
  Sender: FDA-Public Use
  Company Number: DE-009507513-2004DEU006738

PATIENT
  Age: 52 Year
  Sex: Male
  Weight: 80 kg

DRUGS (6)
  1. RESTEX [Interacting]
     Active Substance: BENSERAZIDE\LEVODOPA
     Indication: RESTLESS LEGS SYNDROME
     Dosage: STRENGTH: 100/25 (UNITS NOT REPORTED), 125 MILLIGRAM, QD
     Dates: start: 2019
  2. CYMBALTA [Interacting]
     Active Substance: DULOXETINE HYDROCHLORIDE
     Indication: INTERVERTEBRAL DISC DISORDER
     Dosage: 60 MILLIGRAM, QD
     Dates: start: 2015
  3. MIRTAZAPINE. [Suspect]
     Active Substance: MIRTAZAPINE
     Indication: SLEEP DISORDER
     Dosage: ONE TO TWO TIMES  DAILY
     Dates: start: 2018
  4. GABAPENTIN. [Interacting]
     Active Substance: GABAPENTIN
     Indication: BACK PAIN
     Dosage: 600 MILLIGRAM, QD
     Dates: start: 2018
  5. NOVALGIN (DIPYRONE) [Interacting]
     Active Substance: DIPYRONE
     Dosage: 3 TIMES DAILY
  6. PRAMIPEXOLE. [Interacting]
     Active Substance: PRAMIPEXOLE
     Indication: SEXUAL DYSFUNCTION
     Dosage: ONCE AT NIGHT
     Dates: start: 20200114

REACTIONS (2)
  - Mental impairment [Not Recovered/Not Resolved]
  - Personality change [Not Recovered/Not Resolved]
